FAERS Safety Report 20131380 (Version 1)
Quarter: 2021Q4

REPORT INFORMATION
  Report Type: Spontaneous
  Country: CH (occurrence: CH)
  Receive Date: 20211130
  Receipt Date: 20211130
  Transmission Date: 20220304
  Serious: Yes (Other)
  Sender: FDA-Public Use
  Company Number: CH-AMERICAN REGENT INC-2021003103

PATIENT
  Age: 35 Year
  Sex: Male
  Weight: 61.9 kg

DRUGS (18)
  1. FERINJECT [Suspect]
     Active Substance: FERRIC CARBOXYMALTOSE
     Indication: Fatigue
     Dosage: 500 MG,1 IN 1 TOTAL
     Dates: start: 20210827, end: 20210827
  2. FERINJECT [Suspect]
     Active Substance: FERRIC CARBOXYMALTOSE
     Indication: Performance status decreased
  3. FERINJECT [Suspect]
     Active Substance: FERRIC CARBOXYMALTOSE
     Indication: Serum ferritin abnormal
  4. FERINJECT [Suspect]
     Active Substance: FERRIC CARBOXYMALTOSE
     Indication: Hypochromasia
  5. FERINJECT [Suspect]
     Active Substance: FERRIC CARBOXYMALTOSE
     Indication: Iron deficiency
  6. ACLASTA [Suspect]
     Active Substance: ZOLEDRONIC ACID
     Indication: Product used for unknown indication
     Dosage: 5 MG/100 ML AMPOULE ONCE A YEAR (ALWAYS IN MAY)
     Route: 042
  7. ACLASTA [Suspect]
     Active Substance: ZOLEDRONIC ACID
     Dosage: 5 MG/100 ML AMPOULE ONCE A YEAR (ALWAYS IN MAY)
     Route: 042
     Dates: start: 20210507
  8. PROGRAF [Concomitant]
     Active Substance: TACROLIMUS
     Indication: Product used for unknown indication
     Dosage: 1 MG, MORNING AND EVENING
     Route: 048
  9. PROGRAF [Concomitant]
     Active Substance: TACROLIMUS
     Dosage: 0.5 MG, MORNING AND EVENING
     Route: 048
  10. CYSTADROPS [Concomitant]
     Active Substance: CYSTEAMINE HYDROCHLORIDE
     Indication: Product used for unknown indication
     Dosage: MORNING, NOON, EVENING, NIGHT
     Route: 065
  11. EUTHYROX [Concomitant]
     Active Substance: LEVOTHYROXINE SODIUM
     Indication: Product used for unknown indication
     Dosage: 75 MICROGRAM, MORNING
     Route: 048
  12. PANTOZOL [Concomitant]
     Active Substance: PANTOPRAZOLE SODIUM
     Indication: Product used for unknown indication
     Dosage: 40 MILLIGRAM, MORNING
     Route: 048
  13. TROPIFEN [Concomitant]
     Indication: Product used for unknown indication
     Dosage: 40000 IE (1 IN 3M)
     Route: 065
  14. CALCIUM\CHOLECALCIFEROL [Concomitant]
     Active Substance: CALCIUM\CHOLECALCIFEROL
     Indication: Product used for unknown indication
     Dosage: COLECALCIFEROL (VITAMIN D3) 800 E, CALCIUM IONISED 1 G (1 DOSAGE FORMS, MORNING)
     Route: 048
  15. ROCALTROL [Concomitant]
     Active Substance: CALCITRIOL
     Indication: Product used for unknown indication
     Dosage: 0.25 MCG, MORNINGS MONDAY, WEDNESDAY, FRIDAY
     Route: 048
  16. MAGNESIUM DIASPORAL [MAGNESIUM CITRATE] [Concomitant]
     Indication: Product used for unknown indication
     Dosage: 300 MG, MORNING AND EVENING
     Route: 048
  17. CELLCEPT [Concomitant]
     Active Substance: MYCOPHENOLATE MOFETIL
     Indication: Product used for unknown indication
     Dosage: 500 MG, MORNING AND EVENING
     Route: 048
  18. CYSTAGON [Concomitant]
     Active Substance: CYSTEAMINE BITARTRATE
     Indication: Product used for unknown indication
     Dosage: 18 DOSAGE FORM (6 DOSAGE FORMS , 6-6-0-6
     Route: 048

REACTIONS (2)
  - Hyperparathyroidism [Not Recovered/Not Resolved]
  - Hypophosphataemia [Not Recovered/Not Resolved]

NARRATIVE: CASE EVENT DATE: 20210906
